FAERS Safety Report 12920469 (Version 5)
Quarter: 2017Q1

REPORT INFORMATION
  Report Type: Report from Study
  Country: US (occurrence: US)
  Receive Date: 20161108
  Receipt Date: 20170327
  Transmission Date: 20170428
  Serious: Yes (Other)
  Sender: FDA-Public Use
  Company Number: US-009507513-1610USA014527

PATIENT
  Age: 66 Year
  Sex: Male

DRUGS (31)
  1. PEMBROLIZUMAB. [Suspect]
     Active Substance: PEMBROLIZUMAB
     Indication: MALIGNANT MELANOMA
     Dosage: 200MG
     Route: 042
     Dates: start: 20161124, end: 20161124
  2. PEMBROLIZUMAB. [Suspect]
     Active Substance: PEMBROLIZUMAB
     Dosage: 190 MG
     Route: 042
     Dates: start: 20160608, end: 20160608
  3. PEMBROLIZUMAB. [Suspect]
     Active Substance: PEMBROLIZUMAB
     Dosage: 200MG
     Route: 042
     Dates: start: 20160810, end: 20160810
  4. PEMBROLIZUMAB. [Suspect]
     Active Substance: PEMBROLIZUMAB
     Dosage: 200MG
     Route: 042
     Dates: start: 20160224, end: 20160224
  5. PEMBROLIZUMAB. [Suspect]
     Active Substance: PEMBROLIZUMAB
     Dosage: 180MG
     Route: 042
     Dates: start: 20151223, end: 20151223
  6. PEMBROLIZUMAB. [Suspect]
     Active Substance: PEMBROLIZUMAB
     Dosage: 178MG
     Route: 042
     Dates: start: 20150819, end: 20150819
  7. PEMBROLIZUMAB. [Suspect]
     Active Substance: PEMBROLIZUMAB
     Dosage: UNK
     Route: 042
     Dates: start: 20170215, end: 20170215
  8. PEMBROLIZUMAB. [Suspect]
     Active Substance: PEMBROLIZUMAB
     Dosage: 200MG
     Route: 042
     Dates: start: 20160831, end: 20160831
  9. PEMBROLIZUMAB. [Suspect]
     Active Substance: PEMBROLIZUMAB
     Dosage: 200MG
     Route: 042
     Dates: start: 20161214, end: 20161214
  10. PEMBROLIZUMAB. [Suspect]
     Active Substance: PEMBROLIZUMAB
     Dosage: 200MG
     Route: 042
     Dates: start: 20161102, end: 20161102
  11. PEMBROLIZUMAB. [Suspect]
     Active Substance: PEMBROLIZUMAB
     Dosage: 200MG
     Route: 042
     Dates: start: 20160921, end: 20160921
  12. PEMBROLIZUMAB. [Suspect]
     Active Substance: PEMBROLIZUMAB
     Dosage: 200MG
     Route: 042
     Dates: start: 20160406, end: 20160406
  13. PEMBROLIZUMAB. [Suspect]
     Active Substance: PEMBROLIZUMAB
     Dosage: 200MG
     Route: 042
     Dates: start: 20160316, end: 20160316
  14. PEMBROLIZUMAB. [Suspect]
     Active Substance: PEMBROLIZUMAB
     Dosage: 180MG
     Route: 042
     Dates: start: 20151021, end: 20151021
  15. PEMBROLIZUMAB. [Suspect]
     Active Substance: PEMBROLIZUMAB
     Dosage: 178MG
     Route: 042
     Dates: start: 20150909, end: 20150909
  16. PEMBROLIZUMAB. [Suspect]
     Active Substance: PEMBROLIZUMAB
     Dosage: UNK
     Route: 042
     Dates: start: 20170308, end: 20170308
  17. PEMBROLIZUMAB. [Suspect]
     Active Substance: PEMBROLIZUMAB
     Dosage: 200MG
     Route: 042
     Dates: start: 20161012, end: 20161012
  18. PEMBROLIZUMAB. [Suspect]
     Active Substance: PEMBROLIZUMAB
     Dosage: 190 MG
     Route: 042
     Dates: start: 20160518, end: 20160518
  19. PEMBROLIZUMAB. [Suspect]
     Active Substance: PEMBROLIZUMAB
     Dosage: 180MG
     Route: 042
     Dates: start: 20160113, end: 20160113
  20. PEMBROLIZUMAB. [Suspect]
     Active Substance: PEMBROLIZUMAB
     Dosage: 175MG
     Route: 042
     Dates: start: 20150729, end: 20150729
  21. PEMBROLIZUMAB. [Suspect]
     Active Substance: PEMBROLIZUMAB
     Dosage: 190 MG
     Route: 042
     Dates: start: 20160427, end: 20160427
  22. PEMBROLIZUMAB. [Suspect]
     Active Substance: PEMBROLIZUMAB
     Dosage: 180MG
     Route: 042
     Dates: start: 20151202, end: 20151202
  23. AMIODARONE [Concomitant]
     Active Substance: AMIODARONE
     Dosage: UNK
  24. PEMBROLIZUMAB. [Suspect]
     Active Substance: PEMBROLIZUMAB
     Dosage: 200MG
     Route: 042
     Dates: start: 20160720, end: 20160720
  25. PEMBROLIZUMAB. [Suspect]
     Active Substance: PEMBROLIZUMAB
     Dosage: 200MG
     Route: 042
     Dates: start: 20160629, end: 20160629
  26. PEMBROLIZUMAB. [Suspect]
     Active Substance: PEMBROLIZUMAB
     Dosage: 210 MG
     Route: 042
     Dates: start: 20170125, end: 20170125
  27. PEMBROLIZUMAB. [Suspect]
     Active Substance: PEMBROLIZUMAB
     Dosage: 200MG
     Route: 042
     Dates: start: 20170104, end: 20170104
  28. PEMBROLIZUMAB. [Suspect]
     Active Substance: PEMBROLIZUMAB
     Dosage: 190 MG
     Route: 042
     Dates: start: 20160203, end: 20160203
  29. PEMBROLIZUMAB. [Suspect]
     Active Substance: PEMBROLIZUMAB
     Dosage: 180MG
     Route: 042
     Dates: start: 20151111, end: 20151111
  30. PEMBROLIZUMAB. [Suspect]
     Active Substance: PEMBROLIZUMAB
     Dosage: 180MG
     Route: 042
     Dates: start: 20150930, end: 20150930
  31. ASPIRIN. [Concomitant]
     Active Substance: ASPIRIN
     Dosage: UNK
     Route: 048

REACTIONS (9)
  - Upper respiratory tract infection [Not Recovered/Not Resolved]
  - Hunger [Not Recovered/Not Resolved]
  - Cheilitis [Recovering/Resolving]
  - Fatigue [Not Recovered/Not Resolved]
  - Mood altered [Not Recovered/Not Resolved]
  - Dyspnoea [Not Recovered/Not Resolved]
  - Pulmonary oedema [Not Recovered/Not Resolved]
  - Lip swelling [Recovering/Resolving]
  - Toxicity to various agents [Not Recovered/Not Resolved]

NARRATIVE: CASE EVENT DATE: 201507
